FAERS Safety Report 13360079 (Version 1)
Quarter: 2017Q1

REPORT INFORMATION
  Report Type: Report from Study
  Country: MX (occurrence: MX)
  Receive Date: 20170322
  Receipt Date: 20170322
  Transmission Date: 20170429
  Serious: Yes (Death)
  Sender: FDA-Public Use
  Company Number: PHHY2013MX032306

PATIENT
  Sex: Female

DRUGS (2)
  1. STALEVO [Suspect]
     Active Substance: CARBIDOPA\ENTACAPONE\LEVODOPA
     Indication: PARKINSON^S DISEASE
     Dosage: 3 DF, (CARBIDOPA 37.5 MG, LEVODOPA 150 MG AND ENTACAPONE 200 MG), QD
     Route: 048
  2. STALEVO [Suspect]
     Active Substance: CARBIDOPA\ENTACAPONE\LEVODOPA
     Dosage: 6 DF, (CARBIDOPA 50MG, LEVODOPA 200MG AND ENTACAPONE 200MG), QD
     Route: 065

REACTIONS (2)
  - Speech disorder [Unknown]
  - Death [Fatal]
